FAERS Safety Report 5135144-2 (Version None)
Quarter: 2006Q4

REPORT INFORMATION
  Report Type: 
  Country: None (occurrence: None)
  Receive Date: 20061025
  Receipt Date: 20061017
  Transmission Date: 20070319
  Serious: Yes (Hospitalization)
  Sender: FDA-Public Use
  Company Number: US-JNJFOC-20060906359

PATIENT
  Sex: Female
  Weight: 117.03 kg

DRUGS (12)
  1. REMICADE [Suspect]
     Route: 042
  2. REMICADE [Suspect]
     Indication: CROHN'S DISEASE
     Route: 042
  3. LISINOPRIL [Suspect]
     Indication: DRUG USE FOR UNKNOWN INDICATION
  4. ASACOL [Concomitant]
  5. 6-MP [Concomitant]
  6. FERROUS SULFATE TAB [Concomitant]
  7. ENTOCORT [Concomitant]
  8. METFORMIN HCL [Concomitant]
  9. AVANDIA [Concomitant]
  10. GEMFIBROZIL [Concomitant]
  11. ASPIRIN [Concomitant]
  12. MULTIVITAMIN [Concomitant]

REACTIONS (2)
  - RENAL FAILURE ACUTE [None]
  - RENAL TUBULAR NECROSIS [None]
